FAERS Safety Report 17554532 (Version 2)
Quarter: 2020Q2

REPORT INFORMATION
  Report Type: Spontaneous
  Country: BR (occurrence: BR)
  Receive Date: 20200318
  Receipt Date: 20200425
  Transmission Date: 20200713
  Serious: Yes (Other)
  Sender: FDA-Public Use
  Company Number: BR-AMGEN-BRASP2020043418

PATIENT
  Age: 69 Year
  Sex: Female

DRUGS (1)
  1. ENBREL [Suspect]
     Active Substance: ETANERCEPT
     Indication: PRODUCT USED FOR UNKNOWN INDICATION
     Dosage: UNK, QWK (EVERY WEDNESDAY)
     Route: 065

REACTIONS (5)
  - Finger deformity [Unknown]
  - Peripheral swelling [Unknown]
  - Drug ineffective [Unknown]
  - Spinal disorder [Unknown]
  - Skin injury [Unknown]
